FAERS Safety Report 22930013 (Version 5)
Quarter: 2025Q1

REPORT INFORMATION
  Report Type: Spontaneous
  Country: US (occurrence: US)
  Receive Date: 20230911
  Receipt Date: 20250331
  Transmission Date: 20250409
  Serious: Yes (Other)
  Sender: PFIZER
  Company Number: US-PFIZER INC-202300276998

PATIENT
  Age: 67 Year
  Sex: Female

DRUGS (14)
  1. XELJANZ [Suspect]
     Active Substance: TOFACITINIB CITRATE
     Indication: Psoriatic arthropathy
     Dosage: 5 MG, 2X/DAY
     Route: 048
  2. XELJANZ [Suspect]
     Active Substance: TOFACITINIB CITRATE
     Dosage: 5 MG, 1X/DAY
  3. XELJANZ [Suspect]
     Active Substance: TOFACITINIB CITRATE
  4. JARDIANCE [Concomitant]
     Active Substance: EMPAGLIFLOZIN
  5. LEFLUNOMIDE [Concomitant]
     Active Substance: LEFLUNOMIDE
  6. OMEPRAZOLE [Concomitant]
     Active Substance: OMEPRAZOLE
  7. TYLENOL [Concomitant]
     Active Substance: ACETAMINOPHEN
  8. CALCIPOTRIENE [Concomitant]
     Active Substance: CALCIPOTRIENE
  9. GLIMEPIRIDE [Concomitant]
     Active Substance: GLIMEPIRIDE
  10. CLOBETASOL [Concomitant]
     Active Substance: CLOBETASOL
  11. DICLOFENAC [Concomitant]
     Active Substance: DICLOFENAC
  12. CEPHALEXIN [Concomitant]
     Active Substance: CEPHALEXIN
  13. LEVEMIR [Concomitant]
     Active Substance: INSULIN DETEMIR
  14. NYSTATIN [Concomitant]
     Active Substance: NYSTATIN

REACTIONS (5)
  - Hip fracture [Not Recovered/Not Resolved]
  - Ulcer [Unknown]
  - Tooth extraction [Unknown]
  - Trigeminal neuralgia [Unknown]
  - Off label use [Unknown]
